FAERS Safety Report 9150160 (Version 1)
Quarter: 2013Q1

REPORT INFORMATION
  Report Type: Spontaneous
  Country: US (occurrence: US)
  Receive Date: 20130308
  Receipt Date: 20130308
  Transmission Date: 20140127
  Serious: No
  Sender: FDA-Public Use
  Company Number: US-ASTRAZENECA-2013SE11285

PATIENT
  Age: 57 Year
  Sex: Female

DRUGS (5)
  1. LISINOPRIL [Suspect]
     Route: 048
     Dates: start: 201207
  2. HYDROCHLOROTHIAZIDE [Suspect]
     Route: 065
     Dates: end: 201212
  3. COZAAR [Suspect]
     Route: 065
     Dates: start: 201209
  4. COZAAR [Suspect]
     Route: 065
     Dates: start: 201211
  5. ENALAPRIL [Suspect]
     Route: 065

REACTIONS (4)
  - Blood pressure inadequately controlled [Unknown]
  - Cough [Unknown]
  - Hypoaesthesia [Recovered/Resolved]
  - Dizziness [Not Recovered/Not Resolved]
